FAERS Safety Report 17239684 (Version 2)
Quarter: 2020Q1

REPORT INFORMATION
  Report Type: Report from Study
  Country: US (occurrence: US)
  Receive Date: 20200106
  Receipt Date: 20200304
  Transmission Date: 20200409
  Serious: Yes (Hospitalization)
  Sender: FDA-Public Use
  Company Number: US-ACTELION-A-NJ2020-200249

PATIENT
  Sex: Female
  Weight: 94.33 kg

DRUGS (5)
  1. ADCIRCA [Concomitant]
     Active Substance: TADALAFIL
  2. ELIQUIS [Concomitant]
     Active Substance: APIXABAN
  3. TYVASO [Suspect]
     Active Substance: TREPROSTINIL
     Indication: PRODUCT USED FOR UNKNOWN INDICATION
     Dosage: 16 BREATHS
     Route: 065
  4. OPSUMIT [Suspect]
     Active Substance: MACITENTAN
     Indication: PULMONARY ARTERIAL HYPERTENSION
     Dosage: 10 MG, QD
     Route: 048
  5. TYVASO [Suspect]
     Active Substance: TREPROSTINIL
     Dosage: 15 BREATHS
     Route: 065

REACTIONS (9)
  - Renal disorder [Unknown]
  - Cardiac disorder [Unknown]
  - Pneumonia [Unknown]
  - Oropharyngeal pain [Unknown]
  - Cholelithiasis [Unknown]
  - Cholecystectomy [Unknown]
  - Influenza [Unknown]
  - Cough [Unknown]
  - Endotracheal intubation [Unknown]
